FAERS Safety Report 4323192-1 (Version None)
Quarter: 2004Q1

REPORT INFORMATION
  Report Type: 
  Country: None (occurrence: None)
  Receive Date: 20040322
  Receipt Date: 20040312
  Transmission Date: 20041129
  Serious: No
  Sender: FDA-Public Use
  Company Number: MK200403-0146-1

PATIENT
  Age: 50 Year
  Sex: Female

DRUGS (1)
  1. I131 ORAL SOULTION THER 100MCI [Suspect]
     Indication: THYROID GLAND CANCER
     Dosage: 150 MCI, ONCE

REACTIONS (3)
  - DACRYOSTENOSIS ACQUIRED [None]
  - FIBROSIS [None]
  - LACRIMATION INCREASED [None]
